FAERS Safety Report 17787365 (Version 3)
Quarter: 2020Q3

REPORT INFORMATION
  Report Type: Spontaneous
  Country: US (occurrence: US)
  Receive Date: 20200514
  Receipt Date: 20200709
  Transmission Date: 20201102
  Serious: Yes (Life-Threatening, Hospitalization)
  Sender: FDA-Public Use
  Company Number: US-UNITED THERAPEUTICS-UNT-2020-007137

PATIENT
  Age: 70 Year
  Sex: Female
  Weight: 63.49 kg

DRUGS (5)
  1. TADALAFIL. [Suspect]
     Active Substance: TADALAFIL
     Indication: PRODUCT USED FOR UNKNOWN INDICATION
     Dosage: UNK
     Route: 065
  2. REMODULIN [Suspect]
     Active Substance: TREPROSTINIL
     Indication: PULMONARY ARTERIAL HYPERTENSION
     Dosage: UNK, CONTINUING
     Route: 041
     Dates: start: 20190802
  3. REMODULIN [Suspect]
     Active Substance: TREPROSTINIL
     Dosage: 0.048 ?G/KG, CONTINUING
     Route: 041
  4. LETAIRIS [Suspect]
     Active Substance: AMBRISENTAN
     Indication: PRODUCT USED FOR UNKNOWN INDICATION
     Dosage: UNK
     Route: 065
  5. LETAIRIS [Suspect]
     Active Substance: AMBRISENTAN
     Dosage: 30 MG, QD
     Route: 065

REACTIONS (3)
  - Oxygen saturation decreased [Unknown]
  - Fluid overload [Unknown]
  - Hypoxia [Unknown]

NARRATIVE: CASE EVENT DATE: 20200509
